FAERS Safety Report 9731523 (Version 2)
Quarter: 2013Q4

REPORT INFORMATION
  Report Type: Spontaneous
  Country: US (occurrence: US)
  Receive Date: 20131203
  Receipt Date: 20131203
  Transmission Date: 20140711
  Serious: No
  Sender: FDA-Public Use
  Company Number: US-GILEAD-2008-0016203

PATIENT
  Sex: Male
  Weight: 72.57 kg

DRUGS (8)
  1. VIREAD [Suspect]
     Indication: HIV INFECTION
  2. COQ10 [Concomitant]
  3. RESCRIPTOR [Concomitant]
  4. IGG [Concomitant]
     Dosage: (MONTHLY)
  5. COZAAR [Concomitant]
  6. SEROSTIM [Concomitant]
     Dosage: (3 MG EVERY OTHER DAY)
     Route: 058
  7. TESTOSTERONE [Concomitant]
  8. QUERCETIN [Concomitant]

REACTIONS (1)
  - Bone density decreased [None]
